FAERS Safety Report 7771283-5 (Version None)
Quarter: 2011Q3

REPORT INFORMATION
  Report Type: 
  Country: None (occurrence: None)
  Receive Date: 20110922
  Receipt Date: 20110921
  Transmission Date: 20111222
  Serious: Yes (Other)
  Sender: FDA-Public Use
  Company Number: RO-PFIZER INC-2011206540

PATIENT
  Age: 50 Year
  Sex: Female
  Weight: 68 kg

DRUGS (5)
  1. ASPENTER [Concomitant]
     Dosage: 75 MG, 1X/DAY
  2. METOPROLOL SUCCINATE [Concomitant]
     Dosage: 50 MG, 1X/DAY
  3. PERINDOPRIL [Concomitant]
     Dosage: 10 MG, 1X/DAY
  4. CLOPIDOGREL [Concomitant]
     Dosage: 75 MG, 1X/DAY
  5. ATORVASTATIN CALCIUM [Suspect]
     Indication: MYOCARDIAL INFARCTION
     Dosage: 80 MG, 1X/DAY
     Route: 048
     Dates: start: 20110801, end: 20110802

REACTIONS (1)
  - ANGIOEDEMA [None]
